FAERS Safety Report 9880861 (Version 2)
Quarter: 2014Q1

REPORT INFORMATION
  Report Type: Spontaneous
  Country: US (occurrence: US)
  Receive Date: 20140207
  Receipt Date: 20140310
  Transmission Date: 20141002
  Serious: No
  Sender: FDA-Public Use
  Company Number: US-PFIZER INC-2014035140

PATIENT
  Age: 53 Year
  Sex: Female
  Weight: 83.9 kg

DRUGS (8)
  1. LYRICA [Suspect]
     Indication: FIBROMYALGIA
     Dosage: 450 MG (BY TAKING 3 CAPSULES OF 150MG), 1X/DAY
     Route: 048
     Dates: start: 201307, end: 201402
  2. LYRICA [Suspect]
     Indication: RESTLESS LEGS SYNDROME
     Dosage: 150 PO PRN+300 QHS
     Dates: start: 20130819
  3. PROGRAF [Concomitant]
     Indication: TRANSPLANT REJECTION
     Dosage: UNK
  4. ZOLOFT [Concomitant]
     Indication: ANXIETY
     Dosage: UNK
  5. AMBIEN [Concomitant]
     Dosage: 5 MG, UNK
  6. ATORVASTATIN [Concomitant]
     Dosage: UNK
  7. BUPROPION [Concomitant]
     Dosage: UNK
  8. HYDROXYZINE [Concomitant]
     Dosage: UNK

REACTIONS (3)
  - Pain [Unknown]
  - Insomnia [Unknown]
  - Off label use [Unknown]
